FAERS Safety Report 4289686-2 (Version None)
Quarter: 2004Q1

REPORT INFORMATION
  Report Type: 
  Country: None (occurrence: None)
  Receive Date: 20040203
  Receipt Date: 20030521
  Transmission Date: 20041129
  Serious: Yes (Other)
  Sender: FDA-Public Use
  Company Number: 200318102BWH

PATIENT
  Age: 51 Year
  Sex: Female

DRUGS (5)
  1. AVELOX [Suspect]
     Indication: BRONCHITIS
     Dosage: 400 MG, TOTAL DAILY, ORAL
     Route: 048
     Dates: start: 20030507, end: 20030508
  2. ADVIL [Suspect]
     Dosage: 400 MG, TOTAL DAILY, ORAL
     Route: 048
     Dates: start: 20030508
  3. RHINOCORT [Concomitant]
  4. ALLEGRA [Concomitant]
  5. ADVAIR (SALMETEROL XINAFOATE/FLUTICASONE PROPIONATE) [Concomitant]

REACTIONS (2)
  - CONVULSION [None]
  - FEELING ABNORMAL [None]
